FAERS Safety Report 7617034-6 (Version None)
Quarter: 2011Q3

REPORT INFORMATION
  Report Type: 
  Country: None (occurrence: None)
  Receive Date: 20110718
  Receipt Date: 20091011
  Transmission Date: 20111222
  Serious: Yes (Other)
  Sender: FDA-Public Use
  Company Number: US-BAYER-200936161NA

PATIENT
  Age: 61 Year
  Sex: Female
  Weight: 58 kg

DRUGS (23)
  1. TRASYLOL [Suspect]
     Dosage: 25CC/HR INFUSION
     Route: 042
     Dates: start: 20050421, end: 20050421
  2. COREG [Concomitant]
     Dosage: 3.125 MG, BID
  3. ACETYLSALICYLIC ACID SRT [Concomitant]
     Dosage: 325 MG, QD
  4. XANAX [Concomitant]
     Dosage: 0.25 MG, TID
     Route: 048
  5. MANNITOL [Concomitant]
     Dosage: 25 GMS PUMP PRIME
     Route: 050
  6. RED BLOOD CELLS [Concomitant]
     Dosage: 3 UNITS
     Dates: start: 20050421
  7. OPTIRAY 350 [Concomitant]
     Dosage: 135 CC
     Route: 042
     Dates: start: 20050417
  8. PLAVIX [Concomitant]
     Dosage: 75 MG, QD
     Route: 048
  9. PROTAMINE SULFATE [Concomitant]
     Dosage: 395
  10. ALTACE [Concomitant]
     Dosage: 2.5 MG, QD
  11. PREMARIN [Concomitant]
     Dosage: 0.625 MG, QD
     Route: 048
  12. LOPRESSOR [Concomitant]
     Dosage: 25 MG, BID
     Route: 048
  13. PROTONIX [Concomitant]
     Dosage: 40 MG, QD
     Route: 042
  14. LIDOCAINE [Concomitant]
     Dosage: 100 MG PRIME
  15. LOVENOX [Concomitant]
     Dosage: 40 MG, BID
     Route: 058
  16. AMIODARONE HCL [Concomitant]
  17. TRASYLOL [Suspect]
     Indication: CARDIAC OPERATION
     Dosage: 100 CC LOADING DOSE
     Route: 042
     Dates: start: 20050421, end: 20050421
  18. NITROGLYCERIN [Concomitant]
  19. AMIODARONE HCL [Concomitant]
     Dosage: 200 MG, QD
     Route: 048
  20. VANCOMYCIN [Concomitant]
     Dosage: 1 GM
     Dates: start: 20050421
  21. CEFAZOLIN [Concomitant]
     Dosage: 1 GM PRIME
  22. ALBUMIN (HUMAN) [Concomitant]
     Dosage: 500 ML
  23. INTEGRILIN [Concomitant]

REACTIONS (8)
  - INJURY [None]
  - ANHEDONIA [None]
  - PAIN [None]
  - DEPRESSION [None]
  - ANXIETY [None]
  - UNEVALUABLE EVENT [None]
  - FEAR [None]
  - RENAL FAILURE [None]
